FAERS Safety Report 15534072 (Version 1)
Quarter: 2018Q4

REPORT INFORMATION
  Report Type: Spontaneous
  Country: HU (occurrence: HU)
  Receive Date: 20181019
  Receipt Date: 20181019
  Transmission Date: 20190205
  Serious: Yes (Other)
  Sender: FDA-Public Use
  Company Number: HU-BAYER-2018-194410

PATIENT
  Sex: Female

DRUGS (1)
  1. STIVARGA [Suspect]
     Active Substance: REGORAFENIB
     Indication: HEPATOCELLULAR CARCINOMA
     Dosage: UNK
     Route: 048
     Dates: start: 20170620, end: 201801

REACTIONS (2)
  - Asthenia [Not Recovered/Not Resolved]
  - Hepatocellular carcinoma [None]

NARRATIVE: CASE EVENT DATE: 2017
